FAERS Safety Report 6390547-3 (Version None)
Quarter: 2009Q4

REPORT INFORMATION
  Report Type: 
  Country: None (occurrence: None)
  Receive Date: 20091006
  Receipt Date: 20090924
  Transmission Date: 20100525
  Serious: Yes (Other)
  Sender: FDA-Public Use
  Company Number: DE-SOLVAY-00309005178

PATIENT
  Sex: Male

DRUGS (2)
  1. TESTOSTERONE [Suspect]
     Indication: DRUG USE FOR UNKNOWN INDICATION
     Dosage: DAILY DOSE: 50 MILLIGRAM(S)
     Route: 062
  2. TESTOSTERONE [Suspect]
     Dosage: DAILY DOSE: 25 MILLIGRAM(S)
     Route: 062

REACTIONS (4)
  - AGGRESSION [None]
  - BLOOD PRESSURE INCREASED [None]
  - FATIGUE [None]
  - SKIN EXFOLIATION [None]
